FAERS Safety Report 7588628-1 (Version None)
Quarter: 2011Q3

REPORT INFORMATION
  Report Type: 
  Country: None (occurrence: None)
  Receive Date: 20110705
  Receipt Date: 20110628
  Transmission Date: 20111222
  Serious: Yes (Hospitalization)
  Sender: FDA-Public Use
  Company Number: IT-BRISTOL-MYERS SQUIBB COMPANY-15865132

PATIENT
  Age: 72 Year
  Sex: Male

DRUGS (18)
  1. OMEPRAZOLE [Concomitant]
     Dosage: ANTRA 20MG MODIFIED RELEASE ORAL CAPS
     Route: 048
     Dates: start: 20100508, end: 20110411
  2. HUMALOG [Concomitant]
     Dosage: HUMALOG 100U/ML INJECTABLE SOLUTION
     Route: 058
     Dates: start: 20100508, end: 20110411
  3. ATORVASTATIN CALCIUM [Concomitant]
     Dosage: TABS
     Route: 048
     Dates: start: 20100508, end: 20110411
  4. ROCALTROL [Concomitant]
     Dosage: ROCALTROL 0.25 MCG ORAL CAPS
     Route: 048
     Dates: start: 20110117, end: 20110411
  5. CALCIUM CARBONATE [Concomitant]
     Dosage: CALCIUM CARBONATE 1G EFFERVESCENT ORAL TABS 1DF:2 UNITS
     Route: 048
     Dates: start: 20100508, end: 20110411
  6. COUMADIN [Suspect]
     Dosage: INTERRUPTED ON 11APR11 AND RESTARTED
     Route: 048
     Dates: start: 20100930
  7. FOLIC ACID [Concomitant]
     Dosage: CAPS
     Route: 048
     Dates: start: 20100508, end: 20110411
  8. LANTUS [Concomitant]
     Dosage: LANTUS 100IU/ML INJECTABLE SOLUTION
     Route: 058
     Dates: start: 20100508, end: 20110411
  9. ALLOPURINOL [Concomitant]
     Dosage: ZYLORIC 300MG ORAL TABS 1DF: HALF TAB
     Route: 048
     Dates: start: 20110117, end: 20110411
  10. LYRICA [Concomitant]
     Dosage: CAPS
     Route: 048
     Dates: start: 20100723, end: 20110411
  11. IBRUPROFEN [Suspect]
     Dosage: INT ON 11APR11
     Route: 048
     Dates: start: 20110409
  12. ESKIM [Concomitant]
     Dosage: CAPS
     Route: 048
     Dates: start: 20100723, end: 20110411
  13. DURAGESIC-100 [Suspect]
     Dosage: INT ON 11APR11 DUROGESIC 25MCG/H TRANSDERMAL PATCHES
     Route: 062
     Dates: start: 20110408
  14. ALDACTONE [Concomitant]
     Dosage: 1DF:HALF TAB/DAY ALDACTONE 100MG ORAL COATED TABS
     Route: 048
     Dates: start: 20100723, end: 20110411
  15. SODIUM BICARBONATE [Concomitant]
     Dosage: SODIUM BICARBONATE 500MG
     Dates: start: 20110405, end: 20110411
  16. LASIX [Concomitant]
     Dosage: TABS
     Route: 048
     Dates: start: 20100508, end: 20110411
  17. CARVEDILOL [Concomitant]
     Dosage: DILATREND 6.25MG ORAL TABS
     Route: 048
     Dates: start: 20100508, end: 20110411
  18. NICETILE [Concomitant]
     Dosage: NICETILE 500MG/4ML POWDER FOR INJECTABLE SOLUTION
     Route: 030
     Dates: start: 20110405, end: 20110411

REACTIONS (2)
  - INTERNATIONAL NORMALISED RATIO INCREASED [None]
  - RENAL FAILURE ACUTE [None]
